FAERS Safety Report 8107447-0 (Version None)
Quarter: 2012Q1

REPORT INFORMATION
  Report Type: 
  Country: None (occurrence: None)
  Receive Date: 20120202
  Receipt Date: 20120126
  Transmission Date: 20120608
  Serious: Yes (Disabling)
  Sender: FDA-Public Use
  Company Number: US-AMGEN-USASP2012005351

PATIENT
  Sex: Male

DRUGS (1)
  1. SENSIPAR [Suspect]
     Indication: DIALYSIS

REACTIONS (3)
  - FALL [None]
  - SPINAL DISORDER [None]
  - BLOOD PHOSPHORUS INCREASED [None]
